FAERS Safety Report 8780402 (Version 1)
Quarter: 2012Q4

REPORT INFORMATION
  Report Type: Spontaneous
  Country: US (occurrence: None)
  Receive Date: 20120905
  Receipt Date: 20120905
  Transmission Date: 20130627
  Serious: Yes (Other)
  Sender: FDA-Public Use
  Company Number: None

PATIENT
  Age: 86 Year
  Sex: Female
  Weight: 61.24 kg

DRUGS (1)
  1. SULFAMETHOXAZOLE AND TRIMETHOPRIM DS [Suspect]
     Indication: BLADDER INFECTION
     Dates: start: 20120803

REACTIONS (7)
  - Chest discomfort [None]
  - Headache [None]
  - Pain in jaw [None]
  - Nausea [None]
  - Dry eye [None]
  - Myalgia [None]
  - Myocardial infarction [None]
